FAERS Safety Report 5844563-8 (Version None)
Quarter: 2008Q3

REPORT INFORMATION
  Report Type: 
  Country: None (occurrence: None)
  Receive Date: 20080814
  Receipt Date: 20080813
  Transmission Date: 20090109
  Serious: Yes (Death, Hospitalization)
  Sender: FDA-Public Use
  Company Number: PHHO2002GB10022

PATIENT
  Sex: Male
  Weight: 74 kg

DRUGS (2)
  1. PLACEBO PLACEBO [Suspect]
     Indication: COGNITIVE DISORDER
     Dosage: UNK
     Route: 048
     Dates: start: 19991111
  2. EXELON [Suspect]
     Indication: DEMENTIA
     Dosage: 6 MG, BID
     Route: 048
     Dates: start: 20001109, end: 20021211

REACTIONS (6)
  - CIRCULATORY COLLAPSE [None]
  - DEMENTIA ALZHEIMER'S TYPE [None]
  - DISEASE PROGRESSION [None]
  - GASTROINTESTINAL HAEMORRHAGE [None]
  - MELAENA [None]
  - SYNCOPE [None]
